FAERS Safety Report 17804592 (Version 2)
Quarter: 2020Q2

REPORT INFORMATION
  Report Type: Report from Study
  Country: US (occurrence: US)
  Receive Date: 20200519
  Receipt Date: 20200602
  Transmission Date: 20200714
  Serious: Yes (Hospitalization, Other)
  Sender: FDA-Public Use
  Company Number: US-SHIRE-US202003431

PATIENT
  Age: 88 Year
  Sex: Male
  Weight: 65.31 kg

DRUGS (10)
  1. TEDUGLUTIDE [Suspect]
     Active Substance: TEDUGLUTIDE
     Indication: SHORT-BOWEL SYNDROME
     Dosage: 3.31 MILLIGRAM, 1X/DAY:QD
     Route: 058
  2. SODIUM CHLORIDE. [Concomitant]
     Active Substance: SODIUM CHLORIDE
     Indication: PRODUCT USED FOR UNKNOWN INDICATION
     Dosage: UNK
     Route: 042
     Dates: start: 20190115
  3. TEDUGLUTIDE [Suspect]
     Active Substance: TEDUGLUTIDE
     Indication: INTESTINAL FISTULA
     Dosage: 0.33 MILLILITER, 1X/DAY:QD
     Route: 065
  4. CEFTRIAXONE SODIUM. [Concomitant]
     Active Substance: CEFTRIAXONE SODIUM
     Indication: PRODUCT USED FOR UNKNOWN INDICATION
     Dosage: 100 MILLIGRAM PER MILLILITRE, 1X/DAY:QD
     Route: 065
     Dates: start: 20200318
  5. PETROLATUM. [Concomitant]
     Active Substance: PETROLATUM
     Indication: PRODUCT USED FOR UNKNOWN INDICATION
     Dosage: UNK
     Route: 065
     Dates: start: 20161128
  6. TEDUGLUTIDE [Suspect]
     Active Substance: TEDUGLUTIDE
     Indication: MALABSORPTION
     Dosage: 0.33 MILLIGRAM, 1X/DAY:QD
     Route: 058
     Dates: start: 20170519
  7. TEDUGLUTIDE [Suspect]
     Active Substance: TEDUGLUTIDE
     Dosage: 0.16 MILLILITER, 1X/DAY:QD
     Route: 058
  8. TUMS [CALCIUM CARBONATE;MAGNESIUM CARBONATE;MAGNESIUM TRISILICATE] [Concomitant]
     Active Substance: CALCIUM CARBONATE\MAGNESIUM CARBONATE\MAGNESIUM TRISILICATE
     Indication: PRODUCT USED FOR UNKNOWN INDICATION
     Route: 065
  9. TEDUGLUTIDE [Suspect]
     Active Substance: TEDUGLUTIDE
     Dosage: 1.65 MILLIGRAM, 1X/DAY:QD
     Route: 058
     Dates: start: 20200410
  10. OXIDIZED CELLULOSE [Concomitant]
     Indication: PRODUCT USED FOR UNKNOWN INDICATION
     Dosage: UNK
     Route: 061
     Dates: start: 20200407

REACTIONS (11)
  - Haemorrhage [Unknown]
  - Gastrointestinal fistula [Unknown]
  - Gastrointestinal haemorrhage [Unknown]
  - Stoma site haemorrhage [Recovered/Resolved]
  - Telangiectasia [Unknown]
  - Haematocrit decreased [Unknown]
  - Skin atrophy [Unknown]
  - Thrombosis [Unknown]
  - Intestinal haemorrhage [Unknown]
  - Medical device site haemorrhage [Unknown]
  - Haemoglobin decreased [Unknown]

NARRATIVE: CASE EVENT DATE: 20200126
